FAERS Safety Report 13900004 (Version 2)
Quarter: 2017Q3

REPORT INFORMATION
  Report Type: Spontaneous
  Country: CN (occurrence: CN)
  Receive Date: 20170824
  Receipt Date: 20170825
  Transmission Date: 20171127
  Serious: Yes (Hospitalization)
  Sender: FDA-Public Use
  Company Number: PHHY2017CN122323

PATIENT
  Age: 4 Year
  Sex: Female
  Weight: 16 kg

DRUGS (8)
  1. POTASSIUM MAGNESIUM ASPARTATE [Concomitant]
     Active Substance: MAGNESIUM ASPARTATE\POTASSIUM ASPARTATE
     Indication: BLOOD MAGNESIUM DECREASED
     Dosage: 1 DF, TID
     Route: 048
  2. OXCARBAZEPINE. [Suspect]
     Active Substance: OXCARBAZEPINE
     Dosage: 5 ML, Q12H, 37.5 MG/(KG.D))
     Route: 048
  3. VALPROATE SODIUM. [Suspect]
     Active Substance: VALPROATE SODIUM
     Dosage: 5 ML, Q12H, 25.0 MG/(KG.D))
     Route: 048
  4. LEVETIRACETAM. [Suspect]
     Active Substance: LEVETIRACETAM
     Indication: EPILEPSY
     Dosage: 2 ML, Q12H, (32 MG/(KG.D))
     Route: 048
  5. MAGNESIUM SULFATE. [Concomitant]
     Active Substance: MAGNESIUM SULFATE
     Indication: BLOOD MAGNESIUM DECREASED
     Dosage: 5 ML, QD, (0.2-0.4 ML/(KG.D)
     Route: 030
  6. VALPROATE SODIUM. [Suspect]
     Active Substance: VALPROATE SODIUM
     Indication: EPILEPSY
     Dosage: 2 ML, Q12H (22. 8 MG /(KG.D),)
     Route: 048
  7. LEVETIRACETAM. [Suspect]
     Active Substance: LEVETIRACETAM
     Dosage: 3.5 ML, Q12H, 43.7 MG/(KG.D))
     Route: 048
  8. OXCARBAZEPINE. [Suspect]
     Active Substance: OXCARBAZEPINE
     Indication: EPILEPSY
     Dosage: 4 ML, Q12H, (30.0 MG/(KG.D))
     Route: 048

REACTIONS (4)
  - Hypocalcaemia [Unknown]
  - Seizure [Recovered/Resolved]
  - Therapy non-responder [Unknown]
  - Disease recurrence [Recovered/Resolved]
